FAERS Safety Report 7439331-X (Version None)
Quarter: 2011Q2

REPORT INFORMATION
  Report Type: 
  Country: None (occurrence: None)
  Receive Date: 20110427
  Receipt Date: 20110422
  Transmission Date: 20111010
  Serious: No
  Sender: FDA-Public Use
  Company Number: US-PFIZER INC-2011088085

PATIENT
  Sex: Male
  Weight: 90.703 kg

DRUGS (4)
  1. LISINOPRIL [Concomitant]
     Indication: HYPERTENSION
     Dosage: UNK
  2. VIAGRA [Suspect]
     Dosage: 50 MG, UNK
     Dates: start: 20110101
  3. SIMVASTATIN [Concomitant]
     Indication: BLOOD CHOLESTEROL INCREASED
     Dosage: UNK
  4. VIAGRA [Suspect]
     Indication: ERECTILE DYSFUNCTION
     Dosage: 25 MG, UNK
     Route: 048
     Dates: start: 20110101

REACTIONS (1)
  - DRUG INEFFECTIVE [None]
